FAERS Safety Report 7559654-3 (Version None)
Quarter: 2011Q2

REPORT INFORMATION
  Report Type: 
  Country: None (occurrence: None)
  Receive Date: 20110621
  Receipt Date: 20110607
  Transmission Date: 20111010
  Serious: Yes (Life-Threatening, Hospitalization)
  Sender: FDA-Public Use
  Company Number: US-ROCHE-730989

PATIENT
  Age: 67 Year
  Sex: Male
  Weight: 88 kg

DRUGS (2)
  1. ERLOTINIB HYDROCHLORIDE [Suspect]
     Dosage: FOR 28 DAYS
     Route: 048
     Dates: start: 20060821
  2. BEVACIZUMAB [Suspect]
     Dosage: FORM: INJECTION INFUSION; FREQUENCY:ON DAY 1 AND 15 OF 28-DAY CYCLE, CYCLE 5,LAST DOSE:26 DEC 2006
     Route: 042
     Dates: start: 20060821

REACTIONS (7)
  - PYREXIA [None]
  - HYPONATRAEMIA [None]
  - CHOLECYSTITIS [None]
  - BLOOD BILIRUBIN INCREASED [None]
  - ABDOMINAL PAIN [None]
  - BILE DUCT STENOSIS [None]
  - CHILLS [None]
